FAERS Safety Report 8112334-8 (Version None)
Quarter: 2012Q1

REPORT INFORMATION
  Report Type: 
  Country: None (occurrence: None)
  Receive Date: 20120203
  Receipt Date: 20111221
  Transmission Date: 20120608
  Serious: No
  Sender: FDA-Public Use
  Company Number: US-ASTRAZENECA-2011SE67802

PATIENT
  Age: 50 Year
  Sex: Male

DRUGS (4)
  1. FENTANYL CITRATE [Concomitant]
  2. ZANTAC 75 [Concomitant]
  3. MORPHINE SULFATE [Concomitant]
  4. VANDETANIB [Suspect]
     Indication: THYROID CANCER
     Route: 048

REACTIONS (7)
  - APHASIA [None]
  - VOMITING [None]
  - FATIGUE [None]
  - NAUSEA [None]
  - MUSCLE SPASMS [None]
  - ARTHRALGIA [None]
  - MYALGIA [None]
